FAERS Safety Report 11992549 (Version 1)
Quarter: 2016Q1

REPORT INFORMATION
  Report Type: Spontaneous
  Country: US (occurrence: None)
  Receive Date: 20160202
  Receipt Date: 20160202
  Transmission Date: 20160526
  Serious: No
  Sender: FDA-Public Use
  Company Number: None

PATIENT
  Age: 59 Year
  Sex: Male
  Weight: 61.24 kg

DRUGS (4)
  1. CENTRUYM SILVER VITAMIN [Concomitant]
  2. COLACE [Concomitant]
     Active Substance: DOCUSATE SODIUM
  3. LOW DOSE ASPIRIN [Concomitant]
     Active Substance: ASPIRIN
  4. PRALUENT [Suspect]
     Active Substance: ALIROCUMAB
     Indication: BLOOD CHOLESTEROL INCREASED
     Dosage: INTO THE MUSCLE??EVERY 2 WEEKS
     Route: 030
     Dates: start: 20160122

REACTIONS (6)
  - Muscle spasms [None]
  - Nausea [None]
  - Diarrhoea [None]
  - Fatigue [None]
  - Abdominal pain upper [None]
  - Abdominal pain lower [None]

NARRATIVE: CASE EVENT DATE: 20160122
